FAERS Safety Report 16671674 (Version 3)
Quarter: 2019Q3

REPORT INFORMATION
  Report Type: Spontaneous
  Country: US (occurrence: US)
  Receive Date: 20190806
  Receipt Date: 20190814
  Transmission Date: 20191004
  Serious: No
  Sender: FDA-Public Use
  Company Number: US-BIOGEN-2019BI00769958

PATIENT
  Sex: Female

DRUGS (1)
  1. TECFIDERA [Suspect]
     Active Substance: DIMETHYL FUMARATE
     Indication: MULTIPLE SCLEROSIS
     Route: 048
     Dates: start: 20140915, end: 20150501

REACTIONS (21)
  - Pain [Unknown]
  - Anxiety [Unknown]
  - Thrombosis [Unknown]
  - Emotional distress [Unknown]
  - Feeling of despair [Unknown]
  - Emotional disorder [Unknown]
  - Depressed mood [Unknown]
  - Gait disturbance [Unknown]
  - Pain in extremity [Unknown]
  - Musculoskeletal disorder [Unknown]
  - Insomnia [Not Recovered/Not Resolved]
  - Motor dysfunction [Unknown]
  - Mobility decreased [Unknown]
  - Somnolence [Not Recovered/Not Resolved]
  - Memory impairment [Not Recovered/Not Resolved]
  - Migraine [Not Recovered/Not Resolved]
  - Weight decreased [Recovered/Resolved]
  - Gait inability [Unknown]
  - Frustration tolerance decreased [Unknown]
  - Irritability [Unknown]
  - Mood altered [Unknown]

NARRATIVE: CASE EVENT DATE: 2014
